FAERS Safety Report 4313148-7 (Version None)
Quarter: 2004Q1

REPORT INFORMATION
  Report Type: 
  Country: None (occurrence: None)
  Receive Date: 20040308
  Receipt Date: 20040226
  Transmission Date: 20041129
  Serious: Yes (Other)
  Sender: FDA-Public Use
  Company Number: 200412719GDDC

PATIENT
  Age: 36 Year
  Sex: Female

DRUGS (4)
  1. ALLEGRA-D [Suspect]
     Indication: MULTIPLE ALLERGIES
     Dosage: DOSE: 1/2
     Route: 048
  2. PAXIL [Concomitant]
     Indication: DEPRESSION
     Route: 048
  3. WELLBUTRIN [Concomitant]
     Indication: DEPRESSION
     Route: 048
  4. EPIPEN [Concomitant]
     Indication: HYPERSENSITIVITY
     Dosage: DOSE: UNK

REACTIONS (4)
  - BLADDER DISORDER [None]
  - DYSMENORRHOEA [None]
  - MANIA [None]
  - MICTURITION URGENCY [None]
